FAERS Safety Report 5679949-8 (Version None)
Quarter: 2008Q1

REPORT INFORMATION
  Report Type: 
  Country: None (occurrence: None)
  Receive Date: 20080324
  Receipt Date: 20080314
  Transmission Date: 20080703
  Serious: Yes (Hospitalization)
  Sender: FDA-Public Use
  Company Number: GXKR2008DE02592

PATIENT
  Sex: Female

DRUGS (3)
  1. METOHEXAL (NGX) (METOPROLOL) TABLET [Suspect]
     Dosage: ORAL
     Route: 048
     Dates: start: 20070701
  2. ZINACEF /SCH/ (CEFUROXIME SODIUM) [Concomitant]
  3. DIFLUCAN [Concomitant]

REACTIONS (1)
  - REACTION TO DRUG EXCIPIENTS [None]
